FAERS Safety Report 12678312 (Version 1)
Quarter: 2016Q3

REPORT INFORMATION
  Report Type: Spontaneous
  Country: GB (occurrence: GB)
  Receive Date: 20160823
  Receipt Date: 20160823
  Transmission Date: 20161109
  Serious: Yes (Disabling)
  Sender: FDA-Public Use
  Company Number: GB-TEVA-684589ACC

PATIENT
  Age: 91 Year
  Sex: Female
  Weight: 53 kg

DRUGS (9)
  1. NITROFURANTOIN. [Suspect]
     Active Substance: NITROFURANTOIN
     Dates: start: 20160730
  2. PIVMECILLINAM [Concomitant]
     Active Substance: PENICILLIN
     Dosage: TWO STAT AND ONE THREE TIMES A DAY THEREAFTER
     Dates: start: 20160730
  3. MELOXICAM. [Concomitant]
     Active Substance: MELOXICAM
     Dosage: 1 DOSAGE FORMS DAILY; 1 DOSAGE FORM, EACH MORNING.
     Dates: start: 20150825
  4. OMEPRAZOLE. [Concomitant]
     Active Substance: OMEPRAZOLE
     Dosage: 1 DOSAGE FORM, EVERY MORNING.
     Dates: start: 20150825
  5. PARACETAMOL [Concomitant]
     Active Substance: ACETAMINOPHEN
     Dosage: 8 DOSAGE FORMS DAILY;
     Dates: start: 20150825
  6. AMOXICILLIN. [Concomitant]
     Active Substance: AMOXICILLIN
     Dosage: 15 ML DAILY;
     Dates: start: 20160712, end: 20160719
  7. FERROUS GLUCONATE [Concomitant]
     Active Substance: FERROUS GLUCONATE
     Dosage: 2 DOSAGE FORMS DAILY;
     Dates: start: 20160715
  8. TRIMETHOPRIM. [Concomitant]
     Active Substance: TRIMETHOPRIM
     Dosage: 2 DOSAGE FORMS DAILY;
     Dates: start: 20160711, end: 20160717
  9. CITALOPRAM [Concomitant]
     Active Substance: CITALOPRAM HYDROBROMIDE
     Dosage: 1 DOSAGE FORMS DAILY; 1 DOSAGE FORM, EVERY MORNING
     Dates: start: 20150825

REACTIONS (1)
  - Vomiting [Recovering/Resolving]

NARRATIVE: CASE EVENT DATE: 20160730
